FAERS Safety Report 15844509 (Version 1)
Quarter: 2019Q1

REPORT INFORMATION
  Report Type: Spontaneous
  Country: FR (occurrence: FR)
  Receive Date: 20190118
  Receipt Date: 20190118
  Transmission Date: 20190417
  Serious: Yes (Other)
  Sender: FDA-Public Use
  Company Number: FR-REGENERON PHARMACEUTICALS, INC.-2018-49547

PATIENT

DRUGS (2)
  1. EYLEA [Suspect]
     Active Substance: AFLIBERCEPT
     Indication: PRODUCT USED FOR UNKNOWN INDICATION
     Dosage: UNK, TOTAL OF 29 EYLEA INJECTIONS BEFORE THE EVENT, ENDOPHTHALMITIS AT THE 30TH INJECTION OF EYLEA
  2. EYLEA [Suspect]
     Active Substance: AFLIBERCEPT
     Dosage: UNK, MOST RECENT DOSE BEFORE THE EVENT
     Dates: start: 20181211, end: 20181211

REACTIONS (2)
  - Blindness [Unknown]
  - Endophthalmitis [Recovering/Resolving]

NARRATIVE: CASE EVENT DATE: 20181212
